FAERS Safety Report 4995674-0 (Version None)
Quarter: 2006Q2

REPORT INFORMATION
  Report Type: 
  Country: None (occurrence: None)
  Receive Date: 20060504
  Receipt Date: 20060419
  Transmission Date: 20061013
  Serious: Yes (Other)
  Sender: FDA-Public Use
  Company Number: 2006BH008421

PATIENT
  Age: 23 Year
  Sex: Female

DRUGS (3)
  1. CEFTRIAXONE [Suspect]
     Indication: PNEUMONITIS
     Dosage: 1 GM; ONCE; IV
     Route: 042
     Dates: start: 20060301, end: 20060301
  2. PERCOCET-5 [Concomitant]
  3. ATENOL [Concomitant]

REACTIONS (1)
  - URTICARIA [None]
